FAERS Safety Report 15975196 (Version 2)
Quarter: 2019Q1

REPORT INFORMATION
  Report Type: Spontaneous
  Country: FR (occurrence: FR)
  Receive Date: 20190218
  Receipt Date: 20190219
  Transmission Date: 20190418
  Serious: Yes (Disabling, Other)
  Sender: FDA-Public Use
  Company Number: FR-ROCHE-2266559

PATIENT
  Age: 89 Year
  Sex: Female

DRUGS (3)
  1. AMUKINE [Concomitant]
  2. LUCENTIS [Suspect]
     Active Substance: RANIBIZUMAB
     Route: 031
     Dates: start: 20180523
  3. LUCENTIS [Suspect]
     Active Substance: RANIBIZUMAB
     Indication: NEOVASCULAR AGE-RELATED MACULAR DEGENERATION
     Route: 031

REACTIONS (7)
  - Endophthalmitis [Not Recovered/Not Resolved]
  - Anterior chamber cell [Unknown]
  - Uveitis [Unknown]
  - Ocular hyperaemia [Unknown]
  - Vitritis [Unknown]
  - Eye inflammation [Not Recovered/Not Resolved]
  - Eye pain [Unknown]

NARRATIVE: CASE EVENT DATE: 20180531
